FAERS Safety Report 13351711 (Version 1)
Quarter: 2017Q1

REPORT INFORMATION
  Report Type: Spontaneous
  Country: US (occurrence: US)
  Receive Date: 20170320
  Receipt Date: 20170320
  Transmission Date: 20170429
  Serious: No
  Sender: FDA-Public Use
  Company Number: None

PATIENT
  Age: 86 Year
  Sex: Female
  Weight: 68.95 kg

DRUGS (34)
  1. CANE [Concomitant]
  2. SALINE SOLUTION [Concomitant]
     Active Substance: SODIUM CHLORIDE
  3. SINGULAIR [Concomitant]
     Active Substance: MONTELUKAST SODIUM
  4. PEPCID [Concomitant]
     Active Substance: FAMOTIDINE
  5. BACTROBIN [Concomitant]
  6. FUROSEMIDE. [Concomitant]
     Active Substance: FUROSEMIDE
  7. IMDUR [Concomitant]
     Active Substance: ISOSORBIDE MONONITRATE
  8. LUTEIN [Concomitant]
     Active Substance: LUTEIN
  9. LEVAQUIN [Suspect]
     Active Substance: LEVOFLOXACIN
     Indication: LUNG INFECTION
     Route: 048
     Dates: start: 20160928, end: 20161003
  10. POTASSIUM [Concomitant]
     Active Substance: POTASSIUM
  11. COLAC [Concomitant]
  12. COQ10 [Concomitant]
     Active Substance: UBIDECARENONE
  13. TEKTURNA [Concomitant]
     Active Substance: ALISKIREN HEMIFUMARATE
  14. LEVOTHYROXINE. [Concomitant]
     Active Substance: LEVOTHYROXINE
  15. MULTIVITAMIN [Concomitant]
     Active Substance: VITAMINS
  16. REFENESEN [Concomitant]
     Active Substance: GUAIFENESIN
  17. SUCTION MACHINE [Concomitant]
  18. ALBUTEROL. [Concomitant]
     Active Substance: ALBUTEROL
  19. GURIFENESIN/CODIENE [Concomitant]
  20. SALMON OIL [Concomitant]
     Active Substance: FISH OIL
  21. EYE IMPLANTS [Concomitant]
     Dates: start: 20140209
  22. NEBULIZER [Concomitant]
     Active Substance: DEVICE
  23. ADVAIR HFA [Concomitant]
     Active Substance: FLUTICASONE PROPIONATE\SALMETEROL XINAFOATE
  24. BENZONATATE. [Concomitant]
     Active Substance: BENZONATATE
  25. PROBOTIC [Concomitant]
     Active Substance: PROBIOTICS NOS
  26. O2 [Concomitant]
  27. WALKER [Concomitant]
  28. KENALOG [Concomitant]
     Active Substance: TRIAMCINOLONE ACETONIDE
  29. ASPIRIN. [Concomitant]
     Active Substance: ASPIRIN
  30. CETRIZINE [Concomitant]
     Active Substance: CETIRIZINE HYDROCHLORIDE
  31. TYLENOL [Concomitant]
     Active Substance: ACETAMINOPHEN
  32. VITAMIN B12 [Concomitant]
     Active Substance: CYANOCOBALAMIN
  33. METOPROLOL TARTRATE. [Concomitant]
     Active Substance: METOPROLOL TARTRATE
  34. OSCAL [Concomitant]
     Active Substance: CALCIUM CARBONATE

REACTIONS (7)
  - Sleep disorder due to general medical condition, insomnia type [None]
  - Muscle spasms [None]
  - Peripheral swelling [None]
  - Dysstasia [None]
  - Gait disturbance [None]
  - Muscle disorder [None]
  - Pain [None]

NARRATIVE: CASE EVENT DATE: 20161003
